FAERS Safety Report 15317985 (Version 3)
Quarter: 2018Q3

REPORT INFORMATION
  Report Type: Spontaneous
  Country: PL (occurrence: PL)
  Receive Date: 20180824
  Receipt Date: 20180905
  Transmission Date: 20181010
  Serious: Yes (Life-Threatening, Other)
  Sender: FDA-Public Use
  Company Number: PHHY2018PL077734

PATIENT
  Age: 39 Year
  Sex: Female
  Weight: 70 kg

DRUGS (2)
  1. HERCEPTIN [Suspect]
     Active Substance: TRASTUZUMAB
     Indication: BREAST CANCER
     Dosage: 600 MG, TIW
     Route: 058
     Dates: start: 20180206, end: 20180504
  2. PACLITAXEL. [Suspect]
     Active Substance: PACLITAXEL
     Indication: BREAST CANCER
     Dosage: 1 DF, QW (EVERY WEEK)
     Route: 065

REACTIONS (1)
  - Ejection fraction decreased [Unknown]

NARRATIVE: CASE EVENT DATE: 2018
